FAERS Safety Report 4821850-3 (Version None)
Quarter: 2005Q4

REPORT INFORMATION
  Report Type: 
  Country: None (occurrence: None)
  Receive Date: 20051102
  Receipt Date: 20051012
  Transmission Date: 20060501
  Serious: Yes (Death)
  Sender: FDA-Public Use
  Company Number: EWC051046543

PATIENT
  Age: 82 Year
  Sex: Female

DRUGS (1)
  1. ZYPREXA [Suspect]
     Indication: DEMENTIA
     Dosage: 10 MG DAY
     Route: 030
     Dates: start: 20050927, end: 20050928

REACTIONS (2)
  - BLOOD PRESSURE INCREASED [None]
  - PULMONARY EMBOLISM [None]
